FAERS Safety Report 18292103 (Version 1)
Quarter: 2020Q3

REPORT INFORMATION
  Report Type: Spontaneous
  Country: US (occurrence: US)
  Receive Date: 20200921
  Receipt Date: 20200921
  Transmission Date: 20201103
  Serious: No
  Sender: FDA-Public Use
  Company Number: US-JAZZ-2020-US-009327

PATIENT
  Age: 2 Year
  Sex: Male

DRUGS (1)
  1. XYREM [Suspect]
     Active Substance: SODIUM OXYBATE
     Indication: ACCIDENTAL EXPOSURE TO PRODUCT
     Dosage: ABOUT A DROP
     Route: 048

REACTIONS (5)
  - Oxygen saturation decreased [Recovered/Resolved]
  - Dysarthria [Recovered/Resolved]
  - Heart rate decreased [Recovered/Resolved]
  - Somnolence [Recovered/Resolved]
  - Accidental exposure to product by child [Unknown]

NARRATIVE: CASE EVENT DATE: 20200722
